FAERS Safety Report 21140665 (Version 1)
Quarter: 2022Q3

REPORT INFORMATION
  Report Type: Spontaneous
  Country: US (occurrence: US)
  Receive Date: 20220728
  Receipt Date: 20220728
  Transmission Date: 20221026
  Serious: Yes (Hospitalization, Other)
  Sender: FDA-Public Use
  Company Number: US-IPCA LABORATORIES LIMITED-IPC-2022-US-000955

PATIENT

DRUGS (1)
  1. WARFARIN [Suspect]
     Active Substance: WARFARIN
     Indication: Cardiac valve disease
     Dosage: UNK
     Route: 065

REACTIONS (4)
  - Subdural haematoma [Recovering/Resolving]
  - Injury [Recovering/Resolving]
  - International normalised ratio increased [Recovering/Resolving]
  - Fall [Recovering/Resolving]
